FAERS Safety Report 4823182-6 (Version None)
Quarter: 2005Q4

REPORT INFORMATION
  Report Type: 
  Country: None (occurrence: None)
  Receive Date: 20051027
  Receipt Date: 20040920
  Transmission Date: 20060501
  Serious: Yes (Hospitalization, Other)
  Sender: FDA-Public Use
  Company Number: HQWYE523004OCT04

PATIENT
  Sex: Female

DRUGS (2)
  1. PREMARIN [Suspect]
     Indication: MENOPAUSE
     Dosage: 0.625MG DAILY, ORAL
     Route: 048
     Dates: start: 19920101, end: 19990501
  2. MEDROXYPROGESTERONE ACETATE [Suspect]
     Indication: HORMONE REPLACEMENT THERAPY
     Dosage: ORAL
     Route: 048
     Dates: start: 19921002, end: 19990501

REACTIONS (1)
  - BREAST CANCER [None]
